FAERS Safety Report 22648380 (Version 3)
Quarter: 2024Q1

REPORT INFORMATION
  Report Type: Report from Study
  Country: US (occurrence: US)
  Receive Date: 20230628
  Receipt Date: 20240117
  Transmission Date: 20240410
  Serious: Yes (Hospitalization, Other)
  Sender: FDA-Public Use
  Company Number: US-GILEAD-2023-0633548

PATIENT
  Age: 60 Year
  Sex: Female

DRUGS (34)
  1. AZTREONAM LYSINE [Suspect]
     Active Substance: AZTREONAM LYSINE
     Indication: Illness
     Dosage: 75 MG, TID [VIA ALTERA NEBULIZER FOR 28 DAYS ON AND 28 DAYS OFF]
     Route: 065
     Dates: start: 202206
  2. AZTREONAM LYSINE [Suspect]
     Active Substance: AZTREONAM LYSINE
     Indication: Cystic fibrosis
  3. OFEV [Suspect]
     Active Substance: NINTEDANIB
     Indication: Idiopathic pulmonary fibrosis
     Dosage: 150 MG, BID
     Route: 048
     Dates: start: 20200306
  4. OFEV [Suspect]
     Active Substance: NINTEDANIB
     Dosage: 150 MG, BID
     Route: 048
  5. OFEV [Suspect]
     Active Substance: NINTEDANIB
     Dosage: 150 MG, BID
     Route: 048
  6. OFEV [Suspect]
     Active Substance: NINTEDANIB
     Dosage: 150 MG, BID
     Route: 048
  7. OFEV [Suspect]
     Active Substance: NINTEDANIB
     Dosage: 150 MG, BID
     Route: 048
  8. CELLCEPT [Concomitant]
     Active Substance: MYCOPHENOLATE MOFETIL
     Dosage: UNK
  9. SINGULAIR [Concomitant]
     Active Substance: MONTELUKAST SODIUM
     Dosage: UNK
  10. ROBITUSSIN 12 HOUR COUGH + MUCUS RELIEF [Concomitant]
     Dosage: UNK
  11. PREDNISONE [Concomitant]
     Active Substance: PREDNISONE
  12. ATORVASTATIN [Concomitant]
     Active Substance: ATORVASTATIN
     Dosage: UNK
  13. INCRUSE ELLIPTA [Concomitant]
     Active Substance: UMECLIDINIUM BROMIDE
     Dosage: UNK
  14. SYMBICORT [Concomitant]
     Active Substance: BUDESONIDE\FORMOTEROL FUMARATE DIHYDRATE
     Dosage: UNK
  15. WELLBUTRIN [Concomitant]
     Active Substance: BUPROPION HYDROCHLORIDE
     Dosage: UNK
  16. AMITRIPTYLINE [Concomitant]
     Active Substance: AMITRIPTYLINE
     Dosage: UNK
  17. ALBUTEROL SULFATE [Concomitant]
     Active Substance: ALBUTEROL SULFATE
     Dosage: UNK
  18. VITAMIN C [Concomitant]
     Active Substance: ASCORBIC ACID
     Dosage: UNK
  19. VITAMIN B-1 [THIAMINE HYDROCHLORIDE] [Concomitant]
     Dosage: UNK
  20. CLOPIDOGREL [Concomitant]
     Active Substance: CLOPIDOGREL BISULFATE
     Dosage: UNK
  21. BENZONATATE [Concomitant]
     Active Substance: BENZONATATE
     Dosage: UNK
  22. POTASSIUM [Concomitant]
     Active Substance: POTASSIUM
     Dosage: UNK
  23. FLAXSEED [Concomitant]
     Active Substance: FLAX SEED
     Dosage: UNK
  24. CARISOPRODOL [Concomitant]
     Active Substance: CARISOPRODOL
     Dosage: UNK
  25. OSTEO-BI-FLEX [Concomitant]
     Dosage: UNK
  26. BUTRANS [Concomitant]
     Active Substance: BUPRENORPHINE
     Dosage: UNK
  27. FUROSEMIDE [Concomitant]
     Active Substance: FUROSEMIDE
     Dosage: UNK
  28. ACETAMINOPHEN\OXYCODONE HYDROCHLORIDE\OXYCODONE TEREPHTHALATE [Concomitant]
     Active Substance: ACETAMINOPHEN\OXYCODONE HYDROCHLORIDE\OXYCODONE TEREPHTHALATE
     Dosage: UNK
  29. MUCINEX [Concomitant]
     Active Substance: GUAIFENESIN
     Dosage: UNK
  30. PREVACID [Concomitant]
     Active Substance: LANSOPRAZOLE
     Dosage: UNK
  31. COLACE [Concomitant]
     Active Substance: DOCUSATE SODIUM
     Dosage: UNK
  32. OXYGEN [Concomitant]
     Active Substance: OXYGEN
     Dosage: UNK
  33. VITAMIN D NOS [Concomitant]
     Active Substance: VITAMIN D NOS
     Dosage: UNK
  34. BIFIDOBACTERIUM ANIMALIS LACTIS [Concomitant]
     Active Substance: BIFIDOBACTERIUM ANIMALIS LACTIS
     Dosage: UNK

REACTIONS (5)
  - Elbow operation [Unknown]
  - Infective pulmonary exacerbation of cystic fibrosis [Unknown]
  - Cataract [Unknown]
  - Diarrhoea [Recovering/Resolving]
  - Cough [Unknown]

NARRATIVE: CASE EVENT DATE: 20230316
